FAERS Safety Report 8352116-5 (Version None)
Quarter: 2012Q2

REPORT INFORMATION
  Report Type: 
  Country: None (occurrence: None)
  Receive Date: 20120511
  Receipt Date: 20120501
  Transmission Date: 20120825
  Serious: Yes (Other)
  Sender: FDA-Public Use
  Company Number: GB-JNJFOC-20120504338

PATIENT
  Age: 78 Year
  Sex: Female
  Weight: 97 kg

DRUGS (2)
  1. REMICADE [Suspect]
     Indication: RHEUMATOID ARTHRITIS
     Route: 042
     Dates: start: 20060214
  2. METHOTREXATE [Concomitant]

REACTIONS (1)
  - MALIGNANT MELANOMA [None]
